FAERS Safety Report 7781139-X (Version None)
Quarter: 2011Q3

REPORT INFORMATION
  Report Type: 
  Country: None (occurrence: None)
  Receive Date: 20110927
  Receipt Date: 20110923
  Transmission Date: 20111222
  Serious: Yes (Death, Hospitalization)
  Sender: FDA-Public Use
  Company Number: PHFR2011GB05317

PATIENT
  Sex: Male

DRUGS (5)
  1. CLOZAPINE [Suspect]
     Indication: SCHIZOPHRENIA
     Dosage: 425 MG, FREQUENCY UNKNOWN
     Route: 048
     Dates: start: 20050530
  2. OMEPRAZOLE [Concomitant]
     Dosage: 160 MG, QD
     Route: 065
  3. ATORVASTATIN [Concomitant]
     Dosage: 80 MG, QD
     Route: 065
  4. FENOFIBRATE [Concomitant]
     Dosage: 160 MG, QD
     Route: 065
  5. VALPROATE SODIUM [Concomitant]
     Dosage: 1700 MG, UNK
     Route: 065

REACTIONS (2)
  - PULMONARY EMBOLISM [None]
  - SYNCOPE [None]
